FAERS Safety Report 7711356-6 (Version None)
Quarter: 2011Q3

REPORT INFORMATION
  Report Type: 
  Country: None (occurrence: None)
  Receive Date: 20110817
  Receipt Date: 20110804
  Transmission Date: 20111222
  Serious: Yes (Hospitalization)
  Sender: FDA-Public Use
  Company Number: 2011PROUSA00515

PATIENT
  Age: 68 Year
  Sex: Male
  Weight: 70.6 kg

DRUGS (6)
  1. ACIPHEX [Concomitant]
  2. HYDROMORPHONE HCL [Concomitant]
  3. PROVENGE [Suspect]
     Indication: PROSTATE CANCER METASTATIC
     Dosage: 250 ML, SINGLE, INTRAVENOUS
     Route: 042
     Dates: start: 20110718, end: 20110718
  4. PROVENGE [Suspect]
     Dosage: 250 ML, SINGLE, INTRAVENOUS
     Route: 042
     Dates: start: 20110801, end: 20110801
  5. MS CONTIN [Concomitant]
  6. GABAPENTIN [Concomitant]

REACTIONS (7)
  - BACTERAEMIA [None]
  - OEDEMA PERIPHERAL [None]
  - URETERITIS [None]
  - DEVICE RELATED INFECTION [None]
  - PLATELET COUNT DECREASED [None]
  - HAEMOGLOBIN DECREASED [None]
  - POST PROCEDURAL HAEMORRHAGE [None]
